FAERS Safety Report 8838120 (Version 1)
Quarter: 2012Q4

REPORT INFORMATION
  Report Type: 
  Country: US (occurrence: US)
  Receive Date: 20121012
  Receipt Date: 20121012
  Transmission Date: 20130627
  Serious: Yes (Other)
  Sender: FDA-Public Use
  Company Number: US-ROCHE-1131505

PATIENT
  Sex: Male

DRUGS (11)
  1. RITUXAN [Suspect]
     Indication: WALDENSTROM^S MACROGLOBULINAEMIA
     Route: 065
     Dates: start: 20011101
  2. RITUXAN [Suspect]
     Indication: OFF LABEL USE
  3. CYCLOPHOSPHAMIDE [Concomitant]
  4. HYDROXYDAUNORUBICIN [Concomitant]
  5. VINCRISTINE [Concomitant]
  6. PREDNISOLONE [Concomitant]
  7. PROAMATINE [Concomitant]
     Route: 048
  8. LEVAQUIN [Concomitant]
     Route: 048
  9. SENOKOT [Concomitant]
     Route: 048
  10. FOLATE [Concomitant]
     Route: 048
  11. MAG OXIDE [Concomitant]
     Route: 065

REACTIONS (10)
  - Hypotension [Unknown]
  - Fatigue [Unknown]
  - Decreased appetite [Unknown]
  - Asthenia [Unknown]
  - Affect lability [Unknown]
  - Dizziness [Unknown]
  - Dizziness [Unknown]
  - Oedema [Unknown]
  - Presyncope [Unknown]
  - Malaise [Unknown]
